FAERS Safety Report 9420301 (Version 2)
Quarter: 2014Q1

REPORT INFORMATION
  Report Type: Spontaneous
  Country: IT (occurrence: IT)
  Receive Date: 20130725
  Receipt Date: 20140318
  Transmission Date: 20141002
  Serious: Yes (Other)
  Sender: FDA-Public Use
  Company Number: IT-TEVA-419677ISR

PATIENT
  Age: 50 Year
  Sex: Male

DRUGS (1)
  1. OLANZAPINA TEVA 10MG [Suspect]
     Dosage: 10 MILLIGRAM DAILY;
     Route: 048
     Dates: start: 20130408, end: 20130708

REACTIONS (3)
  - Drug ineffective [Unknown]
  - Paranoid personality disorder [Unknown]
  - Product substitution issue [Unknown]
